FAERS Safety Report 5399809-X (Version None)
Quarter: 2007Q3

REPORT INFORMATION
  Report Type: 
  Country: None (occurrence: None)
  Receive Date: 20070730
  Receipt Date: 20070719
  Transmission Date: 20080115
  Serious: Yes (Death, Hospitalization)
  Sender: FDA-Public Use
  Company Number: BE-ELI_LILLY_AND_COMPANY-BE200707004903

PATIENT
  Age: 72 Year
  Sex: Female
  Weight: 80 kg

DRUGS (3)
  1. OLANZAPINE [Suspect]
     Dosage: 5 MG, 3/D
     Route: 048
     Dates: start: 20070615, end: 20070627
  2. MESTINON [Concomitant]
     Indication: DEMENTIA ALZHEIMER'S TYPE
     Dosage: 60 MG, 4/D
     Route: 048
     Dates: end: 20070627
  3. FLUCONAZOLE [Concomitant]
     Indication: FUNGAL INFECTION
     Dosage: 200 MG, WEEKLY (1/W)
     Route: 048

REACTIONS (4)
  - BLOOD OSMOLARITY DECREASED [None]
  - DEATH [None]
  - DEHYDRATION [None]
  - DIABETIC KETOACIDOSIS [None]
